FAERS Safety Report 8170439-X (Version None)
Quarter: 2012Q1

REPORT INFORMATION
  Report Type: 
  Country: None (occurrence: None)
  Receive Date: 20120104
  Receipt Date: 20111118
  Transmission Date: 20120608
  Serious: No
  Sender: FDA-Public Use
  Company Number: 2011HGS-002845

PATIENT
  Age: 42 Year
  Sex: Female
  Weight: 132.4503 kg

DRUGS (7)
  1. BENLYSTA [Suspect]
     Indication: SYSTEMIC LUPUS ERYTHEMATOSUS
     Dosage: 1 IN 28 D, INTRAVENOUS DRIP
     Route: 041
     Dates: start: 20110801
  2. LEVOTHYROXINE SODIUM [Concomitant]
  3. BABY ASPIRIN (ACETYLSALICYLIC ACID) (ACETYLSALICYLIC ACID) [Concomitant]
  4. HYDROCHLOROTHIAZIDE [Concomitant]
  5. CELLCEPT (MYCOPHENOLATE MOFETIL) (MYCOPHENOLATE MOFETIL) [Concomitant]
  6. ENALAPRIL MALEATE [Concomitant]
  7. PREDNISONE [Concomitant]

REACTIONS (4)
  - COUGH [None]
  - ARTHRALGIA [None]
  - ASTHENIA [None]
  - FATIGUE [None]
